FAERS Safety Report 9344606 (Version 1)
Quarter: 2013Q2

REPORT INFORMATION
  Report Type: Spontaneous
  Country: US (occurrence: None)
  Receive Date: 20130611
  Receipt Date: 20130611
  Transmission Date: 20140414
  Serious: Yes (Life-Threatening, Disabling, Other)
  Sender: FDA-Public Use
  Company Number: None

PATIENT
  Age: 40 Year
  Sex: Female
  Weight: 68.04 kg

DRUGS (11)
  1. MIRENA [Suspect]
     Dates: start: 20120115, end: 20130420
  2. VIT. D [Concomitant]
  3. TURMERIC [Concomitant]
  4. OLIVE LEAF [Concomitant]
  5. VILEX [Concomitant]
  6. OMEGA 3 [Concomitant]
  7. QUEREITIN [Concomitant]
  8. INOSITOL [Concomitant]
  9. CHOLINE [Concomitant]
  10. PEONY [Concomitant]
  11. BURDOCK [Concomitant]

REACTIONS (10)
  - Palpitations [None]
  - Urticaria [None]
  - Angioedema [None]
  - Nausea [None]
  - Pain [None]
  - Musculoskeletal stiffness [None]
  - Swelling [None]
  - Headache [None]
  - Vertigo [None]
  - Photosensitivity reaction [None]
